FAERS Safety Report 7053936-X (Version None)
Quarter: 2010Q4

REPORT INFORMATION
  Report Type: 
  Country: None (occurrence: None)
  Receive Date: 20101020
  Receipt Date: 20101012
  Transmission Date: 20110411
  Serious: Yes (Hospitalization, Other)
  Sender: FDA-Public Use
  Company Number: IE-ROXANE LABORATORIES, INC.-2010-RO-01344RO

PATIENT
  Age: 62 Year
  Sex: Male

DRUGS (4)
  1. HYDROMORPHONE HCL [Suspect]
     Indication: MUSCULOSKELETAL PAIN
     Dosage: 16 MG
     Route: 048
  2. BUPRENORPHINE HYDROCHLORIDE [Suspect]
     Indication: MUSCULOSKELETAL PAIN
     Route: 062
  3. PREGABALIN [Suspect]
     Indication: MUSCULOSKELETAL PAIN
     Dosage: 300 MG
  4. DICLOFENAC SODIUM [Suspect]
     Indication: MUSCULOSKELETAL PAIN
     Dosage: 100 MG

REACTIONS (5)
  - CONSTIPATION [None]
  - HAEMORRHOIDS [None]
  - JOINT EFFUSION [None]
  - MUSCULOSKELETAL PAIN [None]
  - SLEEP DISORDER [None]
